FAERS Safety Report 4943217-X (Version None)
Quarter: 2006Q1

REPORT INFORMATION
  Report Type: 
  Country: None (occurrence: None)
  Receive Date: 20060314
  Receipt Date: 20060306
  Transmission Date: 20060701
  Serious: Yes (Other)
  Sender: FDA-Public Use
  Company Number: PHNR2006AU00573

PATIENT
  Age: 32 Year
  Sex: Female

DRUGS (1)
  1. SYNTOCINON [Suspect]
     Dosage: 40 UNITS 4/24 TO 40 UNITS 8/24
     Dates: start: 20050325

REACTIONS (2)
  - GRAND MAL CONVULSION [None]
  - HYPOTENSION [None]
